FAERS Safety Report 20187924 (Version 1)
Quarter: 2021Q4

REPORT INFORMATION
  Report Type: Spontaneous
  Country: US (occurrence: US)
  Receive Date: 20211215
  Receipt Date: 20211215
  Transmission Date: 20220303
  Serious: Yes (Other)
  Sender: FDA-Public Use
  Company Number: US-PURDUE PHARMA-USA-2020-0189150

PATIENT
  Age: 57 Year
  Sex: Male

DRUGS (2)
  1. HYDROCODONE BITARTRATE [Suspect]
     Active Substance: HYDROCODONE BITARTRATE
     Indication: Neuralgia
     Dosage: UNKNOWN
     Route: 065
     Dates: start: 2015
  2. HYDROMORPHONE HYDROCHLORIDE [Suspect]
     Active Substance: HYDROMORPHONE HYDROCHLORIDE
     Indication: Neuralgia
     Dosage: UNKNOWN
     Route: 065
     Dates: start: 2015

REACTIONS (3)
  - Drug dependence [Unknown]
  - Pain [Unknown]
  - Mental disorder [Unknown]
